FAERS Safety Report 20977982 (Version 1)
Quarter: 2022Q2

REPORT INFORMATION
  Report Type: Spontaneous
  Country: US (occurrence: US)
  Receive Date: 20220618
  Receipt Date: 20220618
  Transmission Date: 20220721
  Serious: Yes (Disabling, Other)
  Sender: FDA-Public Use
  Company Number: US-BRISTOL-MYERS SQUIBB COMPANY-2022-059786

PATIENT
  Age: 78 Year
  Sex: Male
  Weight: 73.6 kg

DRUGS (1)
  1. REVLIMID [Suspect]
     Active Substance: LENALIDOMIDE
     Indication: Plasma cell myeloma
     Dosage: BY MOUTH
     Route: 065
     Dates: start: 20210917

REACTIONS (2)
  - Diarrhoea [Recovered/Resolved]
  - Internal haemorrhage [Recovered/Resolved]
